FAERS Safety Report 4924620-0 (Version None)
Quarter: 2006Q1

REPORT INFORMATION
  Report Type: 
  Country: None (occurrence: None)
  Receive Date: 20060222
  Receipt Date: 20060209
  Transmission Date: 20060701
  Serious: Yes (Life-Threatening, Hospitalization)
  Sender: FDA-Public Use
  Company Number: 2005119809

PATIENT
  Age: 73 Year
  Sex: Male
  Weight: 57 kg

DRUGS (24)
  1. CAMPTOSAR [Suspect]
     Indication: RECTAL CANCER
     Dosage: 90 MG (CYCLICAL), INTRAVENOUS
     Route: 042
     Dates: start: 20041004, end: 20050221
  2. CALCIUM LEVOFOLINATE (CALCIUM LEVOFOLINATE) [Concomitant]
  3. FLUOROURACIL [Concomitant]
  4. PREDNISOLONE [Concomitant]
  5. KYTRIL [Concomitant]
  6. URALYT (ARNICA EXTRACT, CONVALLARIA GLYCOSIDES, ECHINACEA ANGUSTIFOLIA [Concomitant]
  7. ALLOPURINOL [Concomitant]
  8. FLIVAS (NAFTOPIDIL) [Concomitant]
  9. MEDROL [Concomitant]
  10. FLUMARIN (FLOMOXEF SODIUM) [Concomitant]
  11. MAXIPIME [Concomitant]
  12. SULPERAZON (CEFOPERAZONE, SULBACTAM) [Concomitant]
  13. FIRSTCIN (CEFOZOPRAN HYDROCHLORIDE) [Concomitant]
  14. VANCOMYCIN [Concomitant]
  15. PASIL (PAZUFLOXACIN MESILATE) [Concomitant]
  16. IMMUNE GLOBULIN INTRAVENOUS (HUMAN) [Concomitant]
  17. CEFAZOLIN SODIUM [Concomitant]
  18. PIPERACILLIN SODIUM [Concomitant]
  19. ERYTHROMYCIN [Concomitant]
  20. MIYARISAN BM (MIYARI BACTERIA) [Concomitant]
  21. REBAMIPIDE (REBAMIPIDE) [Concomitant]
  22. MAGNESIUM OXIDE (MAGNESIUM OXIDE) [Concomitant]
  23. ALOSENN (ACHILLEA, RUBIA ROOT TINCTURE, SENNA FRUIT, SENNA LEAF, TARAX [Concomitant]
  24. MICAFUNGIN (MICAFUNGIN) [Concomitant]

REACTIONS (8)
  - ABDOMINAL WALL ABSCESS [None]
  - ABNORMAL FAECES [None]
  - CANDIDA SEROLOGY POSITIVE [None]
  - CATHETER RELATED INFECTION [None]
  - CLOSTRIDIUM COLITIS [None]
  - FAECALOMA [None]
  - LARGE INTESTINE PERFORATION [None]
  - RASH [None]
